FAERS Safety Report 10678932 (Version 1)
Quarter: 2014Q4

REPORT INFORMATION
  Report Type: Spontaneous
  Country: US (occurrence: None)
  Receive Date: 20141224
  Receipt Date: 20141224
  Transmission Date: 20150529
  Serious: Yes (Other)
  Sender: FDA-Public Use
  Company Number: None

PATIENT
  Age: 67 Year
  Sex: Female

DRUGS (18)
  1. CITALOPRAM [Concomitant]
     Active Substance: CITALOPRAM HYDROBROMIDE
  2. ALLIPURINOL [Concomitant]
  3. CALCITONIN [Suspect]
     Active Substance: CALCITONIN
  4. IBUPROFEN. [Concomitant]
     Active Substance: IBUPROFEN
  5. ZINC [Concomitant]
     Active Substance: ZINC\ZINC CHLORIDE
  6. AFINITOR [Suspect]
     Active Substance: EVEROLIMUS
     Indication: BREAST CANCER
     Route: 048
     Dates: start: 20140617
  7. VITAMIN B12 [Concomitant]
     Active Substance: CYANOCOBALAMIN
  8. AROMASIN [Concomitant]
     Active Substance: EXEMESTANE
  9. MORPHINE POW SULFATE [Concomitant]
  10. SIMVASTATIN POW [Concomitant]
  11. TRAMADOL HCL [Concomitant]
     Active Substance: TRAMADOL HYDROCHLORIDE
  12. CYCLOBENZAPA POW HCL [Concomitant]
  13. AFINITOA [Concomitant]
  14. CITALOPRAM [Concomitant]
     Active Substance: CITALOPRAM HYDROBROMIDE
  15. CYCLOBENZAPR POW HCL [Concomitant]
  16. AFINITOR [Concomitant]
     Active Substance: EVEROLIMUS
  17. METOPROLOL [Concomitant]
     Active Substance: METOPROLOL
  18. TRIAMTERENE POWDER [Concomitant]

REACTIONS (1)
  - Hepatic enzyme increased [None]
